FAERS Safety Report 8343426-6 (Version None)
Quarter: 2012Q2

REPORT INFORMATION
  Report Type: 
  Country: None (occurrence: None)
  Receive Date: 20120508
  Receipt Date: 20120427
  Transmission Date: 20120825
  Serious: Yes (Other)
  Sender: FDA-Public Use
  Company Number: GB-JNJFOC-20120500944

PATIENT
  Age: 9 Year
  Sex: Male

DRUGS (5)
  1. OXYBUTYNIN CHLORIDE [Suspect]
     Route: 048
     Dates: start: 20120109, end: 20120206
  2. OXYBUTYNIN CHLORIDE [Suspect]
     Route: 048
     Dates: start: 20111114, end: 20120109
  3. OXYBUTYNIN CHLORIDE [Suspect]
     Route: 048
     Dates: start: 20111010, end: 20111114
  4. OXYBUTYNIN CHLORIDE [Suspect]
     Indication: PRODUCT USED FOR UNKNOWN INDICATION
     Route: 048
     Dates: start: 20120109, end: 20120206
  5. OXYBUTYNIN CHLORIDE [Suspect]
     Indication: PRODUCT USED FOR UNKNOWN INDICATION
     Route: 048
     Dates: start: 20120206, end: 20120305

REACTIONS (4)
  - NASAL DRYNESS [None]
  - PALPITATIONS [None]
  - TIC [None]
  - DRY MOUTH [None]
